FAERS Safety Report 25802553 (Version 1)
Quarter: 2025Q3

REPORT INFORMATION
  Report Type: Spontaneous
  Country: EU (occurrence: EU)
  Receive Date: 20250915
  Receipt Date: 20250915
  Transmission Date: 20251020
  Serious: Yes (Hospitalization)
  Sender: MYLAN
  Company Number: None

PATIENT
  Age: 66 Year
  Sex: Male

DRUGS (5)
  1. VANCOMYCIN [Suspect]
     Active Substance: VANCOMYCIN
     Indication: Liver abscess
  2. VANCOMYCIN [Suspect]
     Active Substance: VANCOMYCIN
  3. VANCOMYCIN [Suspect]
     Active Substance: VANCOMYCIN
  4. VANCOMYCIN [Suspect]
     Active Substance: VANCOMYCIN
  5. MEROPENEM [Suspect]
     Active Substance: MEROPENEM
     Indication: Liver abscess

REACTIONS (1)
  - Toxic skin eruption [Not Recovered/Not Resolved]

NARRATIVE: CASE EVENT DATE: 20250822
